FAERS Safety Report 11419998 (Version 1)
Quarter: 2015Q3

REPORT INFORMATION
  Report Type: Spontaneous
  Country: US (occurrence: US)
  Receive Date: 20150826
  Receipt Date: 20150826
  Transmission Date: 20151125
  Serious: No
  Sender: FDA-Public Use
  Company Number: US-ELI_LILLY_AND_COMPANY-US201508006810

PATIENT
  Sex: Female

DRUGS (2)
  1. HUMALOG [Suspect]
     Active Substance: INSULIN LISPRO
     Indication: TYPE 2 DIABETES MELLITUS
     Dosage: 10 U, BID
     Route: 065
     Dates: start: 201303
  2. HUMALOG [Suspect]
     Active Substance: INSULIN LISPRO
     Dosage: 15 DF, EACH EVENING
     Route: 065
     Dates: start: 201503

REACTIONS (4)
  - Fall [Unknown]
  - Skin ulcer [Not Recovered/Not Resolved]
  - Hand fracture [Not Recovered/Not Resolved]
  - Visual acuity reduced [Unknown]

NARRATIVE: CASE EVENT DATE: 201303
